FAERS Safety Report 9393873 (Version 1)
Quarter: 2013Q3

REPORT INFORMATION
  Report Type: Spontaneous
  Country: DK (occurrence: None)
  Receive Date: 20130705
  Receipt Date: 20130705
  Transmission Date: 20140515
  Serious: Yes (Hospitalization)
  Sender: FDA-Public Use
  Company Number: NSR_01172_2013

PATIENT
  Age: 74 Year
  Sex: Female

DRUGS (9)
  1. ALLOPURINOL [Suspect]
     Indication: PRODUCT USED FOR UNKNOWN INDICATION
     Dosage: (DF)
  2. AMLODIPINE [Concomitant]
  3. MAGNESIUM OXIDE [Concomitant]
  4. ESTROGEN [Concomitant]
  5. WARFARIN [Concomitant]
  6. SOLIFENACIN [Concomitant]
  7. METOPROLOL [Concomitant]
  8. FUROSEMIDE [Concomitant]
  9. LOW-CEILING DIURETICS, THIAZIDES [Concomitant]

REACTIONS (1)
  - Drug reaction with eosinophilia and systemic symptoms [None]
